FAERS Safety Report 24825254 (Version 1)
Quarter: 2025Q1

REPORT INFORMATION
  Report Type: Spontaneous
  Country: US (occurrence: US)
  Receive Date: 20250109
  Receipt Date: 20250109
  Transmission Date: 20250409
  Serious: No
  Sender: BAYER HEALTHCARE PHARMACEUTICALS INC.
  Company Number: US-BAYER-2025A003481

PATIENT
  Age: 24 Year
  Sex: Female

DRUGS (1)
  1. KYLEENA [Suspect]
     Active Substance: LEVONORGESTREL
     Dosage: 17.5?G/DAY
     Route: 015
     Dates: start: 20241113, end: 202501

REACTIONS (2)
  - Device expulsion [Recovered/Resolved]
  - Abdominal pain lower [None]

NARRATIVE: CASE EVENT DATE: 20250101
